FAERS Safety Report 22068968 (Version 1)
Quarter: 2023Q1

REPORT INFORMATION
  Report Type: Spontaneous
  Country: US (occurrence: None)
  Receive Date: 20230306
  Receipt Date: 20230306
  Transmission Date: 20230418
  Serious: Yes (unspecified)
  Sender: FDA-Public Use
  Company Number: None

PATIENT
  Age: 42 Year
  Sex: Female
  Weight: 90 kg

DRUGS (1)
  1. COLD AND FLU DAYTIME SEVERE [Suspect]
     Active Substance: ACETAMINOPHEN\DEXTROMETHORPHAN HYDROBROMIDE\GUAIFENESIN\PHENYLEPHRINE HYDROCHLORIDE
     Indication: Nasopharyngitis
     Dates: start: 20230305, end: 20230305

REACTIONS (9)
  - Foreign body in throat [None]
  - Urinary incontinence [None]
  - Unevaluable event [None]
  - Dyspnoea [None]
  - Cough [None]
  - Vomiting [None]
  - Throat irritation [None]
  - Abdominal pain upper [None]
  - Pharyngeal disorder [None]

NARRATIVE: CASE EVENT DATE: 20230305
